FAERS Safety Report 4797287-2 (Version None)
Quarter: 2005Q4

REPORT INFORMATION
  Report Type: 
  Country: None (occurrence: None)
  Receive Date: 20051013
  Receipt Date: 20050912
  Transmission Date: 20060501
  Serious: Yes (Hospitalization)
  Sender: FDA-Public Use
  Company Number: JP-JPN-A20052180

PATIENT
  Age: 72 Year
  Sex: Female

DRUGS (8)
  1. PAXIL [Suspect]
     Indication: DEPRESSION
     Dosage: 10MG PER DAY
     Route: 048
  2. LANSAP [Suspect]
     Indication: HELICOBACTER INFECTION
     Route: 048
     Dates: start: 20050830, end: 20050905
  3. GASMOTIN [Concomitant]
     Indication: GASTRITIS
     Dosage: 5MG THREE TIMES PER DAY
     Route: 048
     Dates: start: 20050722
  4. GASCON [Concomitant]
     Indication: GASTRITIS
     Dosage: 120MG THREE TIMES PER DAY
     Route: 048
     Dates: start: 20050722
  5. THYRADIN S [Concomitant]
     Indication: THYROIDITIS CHRONIC
     Dosage: 25MCG PER DAY
     Route: 048
     Dates: start: 20050708
  6. LANSOPRAZOLE [Concomitant]
     Indication: GASTRITIS
     Route: 065
     Dates: start: 20050830
  7. AMOXICILLIN [Concomitant]
     Indication: GASTRITIS
     Route: 065
     Dates: start: 20050830
  8. CLARITHROMYCIN [Concomitant]
     Route: 065
     Dates: start: 20050830

REACTIONS (6)
  - ANOREXIA [None]
  - DRUG ERUPTION [None]
  - PILOERECTION [None]
  - PRURITUS [None]
  - PYREXIA [None]
  - RASH [None]
